FAERS Safety Report 8761522 (Version 2)
Quarter: 2013Q4

REPORT INFORMATION
  Report Type: Spontaneous
  Country: US (occurrence: US)
  Receive Date: 20120830
  Receipt Date: 20131101
  Transmission Date: 20140711
  Serious: No
  Sender: FDA-Public Use
  Company Number: US-009507513-1208USA009130

PATIENT
  Age: 70 Year
  Sex: Female

DRUGS (1)
  1. COZAAR [Suspect]
     Indication: BLOOD PRESSURE
     Dosage: 50 MG, QD
     Route: 048
     Dates: start: 20100830

REACTIONS (1)
  - Muscle spasms [Not Recovered/Not Resolved]
